FAERS Safety Report 21296089 (Version 1)
Quarter: 2022Q3

REPORT INFORMATION
  Report Type: Spontaneous
  Country: CN (occurrence: CN)
  Receive Date: 20220906
  Receipt Date: 20220906
  Transmission Date: 20221027
  Serious: Yes (Hospitalization)
  Sender: FDA-Public Use
  Company Number: CN-JNJFOC-20220900405

PATIENT
  Age: 2 Year
  Sex: Male
  Weight: 13 kg

DRUGS (1)
  1. MOTRIN INFANTS [Suspect]
     Active Substance: IBUPROFEN
     Indication: Pyrexia
     Route: 048
     Dates: start: 20220713, end: 20220713

REACTIONS (1)
  - Myocardial necrosis marker increased [Recovering/Resolving]

NARRATIVE: CASE EVENT DATE: 20220713
